FAERS Safety Report 5691898-8 (Version None)
Quarter: 2008Q1

REPORT INFORMATION
  Report Type: 
  Country: None (occurrence: None)
  Receive Date: 20080331
  Receipt Date: 20080314
  Transmission Date: 20080703
  Serious: Yes (Hospitalization, Other)
  Sender: FDA-Public Use
  Company Number: 2008US000817

PATIENT
  Age: 49 Year
  Sex: Male

DRUGS (3)
  1. AMBISOME [Suspect]
     Indication: CRYPTOCOCCOSIS
     Dosage: 180 MG, UID/QD, IV NOS
     Route: 042
     Dates: start: 20071205, end: 20071212
  2. AMPHOTERICIN B [Suspect]
     Indication: CRYPTOCOCCOSIS
     Dosage: BID
     Dates: start: 20071213, end: 20071213
  3. ANCOTIL (FLUCYTOSINE) [Concomitant]

REACTIONS (12)
  - ALANINE AMINOTRANSFERASE INCREASED [None]
  - ASPARTATE AMINOTRANSFERASE INCREASED [None]
  - CAUDA EQUINA SYNDROME [None]
  - CEREBRAL FUNGAL INFECTION [None]
  - CRYPTOCOCCOSIS [None]
  - DIARRHOEA [None]
  - GAMMA-GLUTAMYLTRANSFERASE INCREASED [None]
  - LIVER FUNCTION TEST ABNORMAL [None]
  - NAUSEA [None]
  - RENAL FAILURE ACUTE [None]
  - SENSORIMOTOR DISORDER [None]
  - VOMITING [None]
